FAERS Safety Report 6832108-5 (Version None)
Quarter: 2010Q3

REPORT INFORMATION
  Report Type: 
  Country: None (occurrence: None)
  Receive Date: 20100712
  Receipt Date: 20100628
  Transmission Date: 20110219
  Serious: Yes (Hospitalization)
  Sender: FDA-Public Use
  Company Number: GB-AMGEN-US344382

PATIENT
  Sex: Male

DRUGS (3)
  1. ENBREL [Suspect]
     Indication: ANKYLOSING SPONDYLITIS
     Route: 058
     Dates: start: 20060403, end: 20090301
  2. HUMIRA [Suspect]
     Indication: PRODUCT USED FOR UNKNOWN INDICATION
     Dosage: 40 MG / 0.8 ML, FREQUENCY UNKNOWN
     Dates: start: 20090101
  3. ACETAMINOPHEN AND CODEINE PHOSPHATE [Concomitant]
     Indication: ANALGESIC THERAPY
     Dosage: 30/500 2 TABLETS, 4 TIMES A DAY, AS NEEDED
     Route: 048
     Dates: start: 20080101

REACTIONS (5)
  - CONDITION AGGRAVATED [None]
  - DACTYLITIS [None]
  - INFECTION [None]
  - OSTEOMYELITIS [None]
  - PSORIASIS [None]
